FAERS Safety Report 6304858-0 (Version None)
Quarter: 2009Q3

REPORT INFORMATION
  Report Type: 
  Country: None (occurrence: None)
  Receive Date: 20090806
  Receipt Date: 20090728
  Transmission Date: 20100115
  Serious: Yes (Life-Threatening, Hospitalization, Other)
  Sender: FDA-Public Use
  Company Number: IND1-UK-2009-0015

PATIENT
  Age: 9 Year
  Sex: Male

DRUGS (3)
  1. INDOMETHACIN [Suspect]
  2. GENTAMICIN [Suspect]
  3. TOBRAMYCIN (TORRAMYCIN) (TOBRAMYCIN) [Concomitant]
     Dosage: 3.47 MG/KG (4.49 MG/KG,3 IN 1 D)   INTRAVENOUS (NOT OTHERWISE SPECIFIED)
     Route: 042

REACTIONS (1)
  - RENAL FAILURE ACUTE [None]
